FAERS Safety Report 25616374 (Version 2)
Quarter: 2025Q3

REPORT INFORMATION
  Report Type: Spontaneous
  Country: KR (occurrence: KR)
  Receive Date: 20250729
  Receipt Date: 20250917
  Transmission Date: 20251021
  Serious: Yes (Hospitalization)
  Sender: SAMSUNG BIOEPIS
  Company Number: KR-SAMSUNG BIOEPIS-SB-2025-25503

PATIENT
  Age: 65 Year
  Sex: Female
  Weight: 41 kg

DRUGS (22)
  1. TRASTUZUMAB [Suspect]
     Active Substance: TRASTUZUMAB
     Indication: Gallbladder cancer
     Route: 042
     Dates: start: 20241128, end: 20250722
  2. TRASTUZUMAB [Suspect]
     Active Substance: TRASTUZUMAB
     Route: 042
     Dates: start: 20250731
  3. NIVOLUMAB [Suspect]
     Active Substance: NIVOLUMAB
     Indication: Gallbladder cancer
     Route: 042
     Dates: start: 20241128, end: 20250722
  4. NIVOLUMAB [Suspect]
     Active Substance: NIVOLUMAB
     Route: 042
     Dates: start: 20250731
  5. GEMCITABINE [Suspect]
     Active Substance: GEMCITABINE
     Indication: Gallbladder cancer
     Dosage: D1, D8;
     Route: 042
     Dates: start: 20241128, end: 20250722
  6. GEMCITABINE [Suspect]
     Active Substance: GEMCITABINE
     Dosage: D1, D8
     Route: 042
     Dates: start: 20250731
  7. CISPLATIN [Suspect]
     Active Substance: CISPLATIN
     Indication: Gallbladder cancer
     Dosage: D1, D8;
     Route: 042
     Dates: start: 20241128, end: 20250722
  8. CISPLATIN [Suspect]
     Active Substance: CISPLATIN
     Dosage: D1, D8
     Route: 042
     Dates: start: 20250731
  9. HUONS HEPARIN SODIUM [Concomitant]
     Indication: Product used for unknown indication
     Dates: start: 20241128
  10. Dexamethasone Daewon [Concomitant]
     Indication: Product used for unknown indication
     Dates: start: 20241128
  11. PHENIL [CHLORPHENAMINE MALEATE] [Concomitant]
     Indication: Product used for unknown indication
     Dates: start: 20241128
  12. AKYNZEO [FOSNETUPITANT CHLORIDE HYDROCHLORIDE;PALONOSETRON HYDROCHLORI [Concomitant]
     Indication: Product used for unknown indication
     Dosage: CAPSULE;
     Dates: start: 20241128
  13. Dulackhan [Concomitant]
     Indication: Product used for unknown indication
     Dates: start: 20250116
  14. PROPRANOLOL HYDROCHLORIDE [Concomitant]
     Active Substance: PROPRANOLOL HYDROCHLORIDE
     Indication: Prophylaxis
     Dates: start: 20250116
  15. Choliacen [Concomitant]
     Indication: Product used for unknown indication
     Dates: start: 20250119
  16. Panto K [Concomitant]
     Indication: Prophylaxis
     Dates: start: 20250119
  17. Crezet [Concomitant]
     Indication: Product used for unknown indication
     Dosage: 10/5 MG;
     Dates: start: 20250119
  18. HERBALS [Concomitant]
     Active Substance: HERBALS
     Indication: Prophylaxis
     Dosage: 10/5 MG
     Dates: start: 20250119
  19. Ursa Daewoong [Concomitant]
     Indication: Prophylaxis
     Dates: start: 20250123
  20. ROWACHOL [BORNEOL;CAMPHENE;CINEOLE;MENTHOL;MENTHONE;OLEA EUROPAEA;PINE [Concomitant]
     Indication: Prophylaxis
     Dates: start: 20250131
  21. METRONIDAZOLE [Concomitant]
     Active Substance: METRONIDAZOLE
     Indication: Product used for unknown indication
     Dates: start: 20250213
  22. Ceftriaxone Boryung [Concomitant]
     Indication: Product used for unknown indication
     Dates: start: 20250213

REACTIONS (2)
  - Febrile neutropenia [Recovered/Resolved]
  - Off label use [Unknown]

NARRATIVE: CASE EVENT DATE: 20250721
